FAERS Safety Report 7468949-3 (Version None)
Quarter: 2011Q2

REPORT INFORMATION
  Report Type: 
  Country: None (occurrence: None)
  Receive Date: 20110429
  Receipt Date: 20110415
  Transmission Date: 20111010
  Serious: Yes (Hospitalization, Disabling, Other)
  Sender: FDA-Public Use
  Company Number: 2010SP065480

PATIENT
  Sex: Female
  Weight: 63.5036 kg

DRUGS (2)
  1. NUVARING [Suspect]
     Indication: CONTRACEPTION
     Dates: end: 20090101
  2. ACETAMINOPHEN [Concomitant]

REACTIONS (18)
  - MESENTERIC VEIN THROMBOSIS [None]
  - PAIN [None]
  - COGNITIVE DISORDER [None]
  - THROMBOSIS [None]
  - ATRIAL FIBRILLATION [None]
  - BRADYCARDIA [None]
  - PULMONARY EMBOLISM [None]
  - MENTAL DISORDER [None]
  - COAGULOPATHY [None]
  - SPLENIC VEIN THROMBOSIS [None]
  - PORTAL VEIN THROMBOSIS [None]
  - INJURY [None]
  - BLOOD DISORDER [None]
  - DEEP VEIN THROMBOSIS [None]
  - EMOTIONAL DISORDER [None]
  - ARRHYTHMIA [None]
  - TACHYCARDIA [None]
  - HEART RATE IRREGULAR [None]
